FAERS Safety Report 7668066-3 (Version None)
Quarter: 2011Q3

REPORT INFORMATION
  Report Type: 
  Country: None (occurrence: None)
  Receive Date: 20110808
  Receipt Date: 20110801
  Transmission Date: 20111222
  Serious: Yes (Other)
  Sender: FDA-Public Use
  Company Number: US-TEVA-287387USA

PATIENT
  Sex: Female

DRUGS (7)
  1. ICAPS PLUS [Concomitant]
     Dosage: 2 TABLETS TWICE DAILY
  2. VITAMIN-MINERAL COMPOUND TAB [Concomitant]
     Dosage: 1 TABLET TWICE DAILY
  3. AMLODIPINE W/BENAZEPRIL [Concomitant]
     Dosage: 5/20 MG ONE CAP DAILY
  4. LATANOPROST [Concomitant]
     Dosage: 0.005% DROPS, 1 DROP BOTH EYES DAILY
  5. LEVETIRACETAM [Suspect]
     Dates: start: 20110201
  6. DORZOLAMIDE [Concomitant]
     Dosage: 2 1/2 DROPS, 1 DROP BOTH EYES TWICE DAILY
  7. LEKOVIT CA [Concomitant]
     Dosage: 600 MG/400 UNITS ONE DAILY

REACTIONS (4)
  - COMPLEX PARTIAL SEIZURES [None]
  - WEIGHT DECREASED [None]
  - FATIGUE [None]
  - LOSS OF CONSCIOUSNESS [None]
